FAERS Safety Report 6645033-X (Version None)
Quarter: 2010Q1

REPORT INFORMATION
  Report Type: 
  Country: None (occurrence: None)
  Receive Date: 20100322
  Receipt Date: 20100318
  Transmission Date: 20100710
  Serious: Yes (Death, Hospitalization)
  Sender: FDA-Public Use
  Company Number: PHEH2010US03061

PATIENT
  Sex: Female

DRUGS (9)
  1. GLEEVEC [Suspect]
     Indication: CHRONIC MYELOID LEUKAEMIA
     Dosage: 200 MG, TID
     Route: 048
     Dates: start: 20100302, end: 20100308
  2. LASIX [Concomitant]
     Indication: ASCITES
     Dosage: 40 MG, QD
     Dates: start: 20100208, end: 20100212
  3. SPIRONOLACTONE [Concomitant]
     Indication: ASCITES
     Dosage: 50 MG, TID
     Dates: start: 20100127
  4. VERAPAMIL [Concomitant]
     Indication: HYPERTENSION
     Dosage: 360 MG, QD
     Dates: start: 19900101, end: 20100212
  5. VERAPAMIL [Concomitant]
     Indication: SUPRAVENTRICULAR TACHYCARDIA
  6. LANTUS [Concomitant]
     Indication: DIABETES MELLITUS
     Dosage: 44 U, QD
     Route: 058
     Dates: start: 20100208, end: 20100212
  7. LEVOXYL [Concomitant]
     Indication: HYPOTHYROIDISM
     Dosage: 125 MCG QD
     Dates: start: 19700101, end: 20100212
  8. CITALOPRAM HYDROBROMIDE [Concomitant]
     Indication: DEPRESSION
     Dosage: 20 MG, QD
     Dates: start: 20060101, end: 20100212
  9. AMITRIPTYLINE HCL [Concomitant]
     Indication: DEPRESSION
     Dosage: 50 MG, QHS
     Dates: start: 20040101, end: 20100212

REACTIONS (16)
  - ATELECTASIS [None]
  - ATRIAL FLUTTER [None]
  - CARDIAC ARREST [None]
  - CARDIAC FAILURE [None]
  - CARDIOMEGALY [None]
  - DIZZINESS [None]
  - DYSPNOEA [None]
  - FATIGUE [None]
  - HYPERHIDROSIS [None]
  - LOSS OF CONSCIOUSNESS [None]
  - MUSCULOSKELETAL PAIN [None]
  - NAUSEA [None]
  - NODAL RHYTHM [None]
  - URINE OUTPUT DECREASED [None]
  - VENTRICULAR ARRHYTHMIA [None]
  - VOMITING [None]
